FAERS Safety Report 16408643 (Version 1)
Quarter: 2019Q2

REPORT INFORMATION
  Report Type: Spontaneous
  Country: US (occurrence: US)
  Receive Date: 20190502
  Receipt Date: 20190502
  Transmission Date: 20190711
  Serious: Yes (Hospitalization)
  Sender: FDA-Public Use
  Company Number: None

PATIENT
  Age: 62 Year
  Sex: Female
  Weight: 53.5 kg

DRUGS (1)
  1. ABRAXANE [Suspect]
     Active Substance: PACLITAXEL
     Indication: BREAST CANCER METASTATIC
     Dosage: 260MG/M2 (400MG); Q3 WEEKS X2; IV?
     Route: 042
     Dates: start: 20190320, end: 20190409

REACTIONS (6)
  - Oedema peripheral [None]
  - Gait disturbance [None]
  - Pain [None]
  - Toxic erythema of chemotherapy [None]
  - Dysstasia [None]
  - Blister [None]

NARRATIVE: CASE EVENT DATE: 20190412
